FAERS Safety Report 23515530 (Version 3)
Quarter: 2024Q2

REPORT INFORMATION
  Report Type: Report from Study
  Country: US (occurrence: US)
  Receive Date: 20240213
  Receipt Date: 20240415
  Transmission Date: 20240716
  Serious: Yes (Other)
  Sender: FDA-Public Use
  Company Number: US-ABBVIE-5577530

PATIENT
  Age: 55 Year
  Sex: Male

DRUGS (4)
  1. RINVOQ [Suspect]
     Active Substance: UPADACITINIB
     Indication: Colitis ulcerative
     Route: 048
     Dates: start: 20231205, end: 20240207
  2. RINVOQ [Suspect]
     Active Substance: UPADACITINIB
     Indication: Colitis ulcerative
     Route: 048
     Dates: start: 20231130
  3. RINVOQ [Suspect]
     Active Substance: UPADACITINIB
     Indication: Colitis ulcerative
     Dosage: FIRST ADMIN DATE: 2024
     Route: 048
  4. IRON [Suspect]
     Active Substance: IRON
     Indication: Product used for unknown indication
     Route: 065

REACTIONS (11)
  - Diverticulitis [Not Recovered/Not Resolved]
  - Infection susceptibility increased [Not Recovered/Not Resolved]
  - Urinary tract infection [Recovered/Resolved]
  - Drug ineffective [Recovered/Resolved]
  - Infection [Not Recovered/Not Resolved]
  - Urinary bladder abscess [Not Recovered/Not Resolved]
  - Abdominal discomfort [Recovering/Resolving]
  - Freezing phenomenon [Recovered/Resolved]
  - Adverse drug reaction [Recovered/Resolved]
  - Abdominal pain upper [Not Recovered/Not Resolved]
  - Colitis ulcerative [Not Recovered/Not Resolved]

NARRATIVE: CASE EVENT DATE: 20230103
